FAERS Safety Report 18563204 (Version 2)
Quarter: 2021Q4

REPORT INFORMATION
  Report Type: Other
  Country: CA (occurrence: CA)
  Receive Date: 20201201
  Receipt Date: 20211026
  Transmission Date: 20220303
  Serious: Yes (Other)
  Sender: FDA-Public Use
  Company Number: CA-CELLTRION INC.-2020CA032682

PATIENT

DRUGS (9)
  1. RITUXIMAB [Suspect]
     Active Substance: RITUXIMAB
     Indication: Rheumatoid arthritis
     Dosage: 1000.0 MILLIGRAM
     Route: 042
  2. ACETAMINOPHEN [Concomitant]
     Active Substance: ACETAMINOPHEN
     Indication: Premedication
     Dosage: 650.0 MILLIGRAM
     Route: 048
  3. ARAVA [Concomitant]
     Active Substance: LEFLUNOMIDE
     Dosage: 10.0 MILLIGRAM, 1 EVERY 2 DAYS
     Route: 065
  4. DIPHENHYDRAMINE HYDROCHLORIDE [Concomitant]
     Active Substance: DIPHENHYDRAMINE HYDROCHLORIDE
     Indication: Premedication
     Dosage: 50.0 MILLIGRAM
     Route: 048
  5. FOLIC ACID [Concomitant]
     Active Substance: FOLIC ACID
  6. METFORMIN [Concomitant]
     Active Substance: METFORMIN HYDROCHLORIDE
     Route: 065
  7. METHOTREXATE [Concomitant]
     Active Substance: METHOTREXATE
     Route: 048
  8. METHYLPREDNISOLONE [Concomitant]
     Active Substance: METHYLPREDNISOLONE
     Indication: Premedication
     Dosage: 100.0 MILLIGRAM
     Route: 042
  9. DOCONEXENT\ICOSAPENT [Concomitant]
     Active Substance: DOCONEXENT\ICOSAPENT

REACTIONS (14)
  - Musculoskeletal stiffness [Not Recovered/Not Resolved]
  - Pain in extremity [Not Recovered/Not Resolved]
  - Peripheral nerve injury [Not Recovered/Not Resolved]
  - Rheumatoid arthritis [Not Recovered/Not Resolved]
  - Synovitis [Not Recovered/Not Resolved]
  - Alanine aminotransferase increased [Not Recovered/Not Resolved]
  - Blood glucose increased [Not Recovered/Not Resolved]
  - Crystal urine present [Not Recovered/Not Resolved]
  - Glucose urine present [Not Recovered/Not Resolved]
  - Monocyte count decreased [Not Recovered/Not Resolved]
  - Urine leukocyte esterase positive [Not Recovered/Not Resolved]
  - White blood cell count decreased [Not Recovered/Not Resolved]
  - White blood cells urine positive [Not Recovered/Not Resolved]
  - Arthralgia [Not Recovered/Not Resolved]
